FAERS Safety Report 7082550-5 (Version None)
Quarter: 2010Q4

REPORT INFORMATION
  Report Type: 
  Country: None (occurrence: None)
  Receive Date: 20101104
  Receipt Date: 20101025
  Transmission Date: 20110411
  Serious: Yes (Other)
  Sender: FDA-Public Use
  Company Number: GB-PAR PHARMACEUTICAL, INC-2010SCPR002282

PATIENT
  Sex: Female

DRUGS (1)
  1. CAPTOPRIL [Suspect]
     Dosage: UNK MG, UNKNOWN
     Route: 065

REACTIONS (3)
  - HALLUCINATION [None]
  - PRODUCT ODOUR ABNORMAL [None]
  - PRODUCT QUALITY ISSUE [None]
